FAERS Safety Report 9684797 (Version 1)
Quarter: 2013Q4

REPORT INFORMATION
  Report Type: Spontaneous
  Country: PL (occurrence: PL)
  Receive Date: 20131112
  Receipt Date: 20131112
  Transmission Date: 20140711
  Serious: Yes (Hospitalization)
  Sender: FDA-Public Use
  Company Number: PHHY2013PL125504

PATIENT
  Age: 63 Year
  Sex: Male
  Weight: 70 kg

DRUGS (1)
  1. CLINDAMYCIN [Suspect]
     Indication: GINGIVAL INFLAMMATION
     Dosage: 1200 MG, UNK
     Route: 048
     Dates: start: 20130510, end: 20130518

REACTIONS (3)
  - Skin oedema [Recovered/Resolved]
  - Oedema peripheral [Recovered/Resolved]
  - Anaemia [Recovered/Resolved]
